FAERS Safety Report 25608284 (Version 4)
Quarter: 2025Q4

REPORT INFORMATION
  Report Type: Spontaneous
  Country: US (occurrence: US)
  Receive Date: 20250725
  Receipt Date: 20251110
  Transmission Date: 20260117
  Serious: Yes (Hospitalization, Other)
  Sender: BRISTOL-MYERS SQUIBB COMPANY
  Company Number: US-BRISTOL-MYERS SQUIBB COMPANY-2025-104189

PATIENT
  Age: 84 Year
  Sex: Female

DRUGS (2)
  1. POMALYST [Suspect]
     Active Substance: POMALIDOMIDE
     Indication: Plasma cell myeloma
     Dosage: DAILY FOR 21 DAYS ON + 7 DAYS OFF
     Route: 048
     Dates: start: 202506
  2. POMALYST [Suspect]
     Active Substance: POMALIDOMIDE
     Dosage: DAILY
     Route: 048
     Dates: start: 202506

REACTIONS (7)
  - Amnesia [Unknown]
  - Confusional state [Unknown]
  - Visual impairment [Unknown]
  - Nephropathy [Unknown]
  - Hypoaesthesia [Unknown]
  - Balance disorder [Unknown]
  - Constipation [Unknown]
